FAERS Safety Report 8490238-9 (Version None)
Quarter: 2012Q3

REPORT INFORMATION
  Report Type: 
  Country: None (occurrence: None)
  Receive Date: 20120705
  Receipt Date: 20120109
  Transmission Date: 20120928
  Serious: No
  Sender: FDA-Public Use
  Company Number: US-BAUSCH-2012BL000210

PATIENT
  Age: 80 Year
  Sex: Male

DRUGS (2)
  1. OPCON-A [Suspect]
     Indication: DRY EYE
     Route: 047
     Dates: start: 20111230, end: 20120108
  2. OPCON-A [Suspect]
     Indication: OCULAR HYPERAEMIA
     Route: 047
     Dates: start: 20111230, end: 20120108

REACTIONS (3)
  - EYE IRRITATION [None]
  - VISION BLURRED [None]
  - DRUG LABEL CONFUSION [None]
